FAERS Safety Report 9168264 (Version 1)
Quarter: 2013Q1

REPORT INFORMATION
  Report Type: Spontaneous
  Country: FR (occurrence: FR)
  Receive Date: 20130318
  Receipt Date: 20130318
  Transmission Date: 20140127
  Serious: Yes (Other)
  Sender: FDA-Public Use
  Company Number: PHHY2013FR024845

PATIENT
  Sex: Female

DRUGS (1)
  1. ILARIS [Suspect]
     Dosage: UNK
     Route: 058
     Dates: start: 20130123, end: 20130123

REACTIONS (5)
  - Face oedema [Unknown]
  - Erythema [Unknown]
  - Sensory loss [Unknown]
  - Pyrexia [Unknown]
  - Urticaria [Unknown]
